FAERS Safety Report 16867173 (Version 1)
Quarter: 2019Q3

REPORT INFORMATION
  Report Type: Spontaneous
  Country: US (occurrence: US)
  Receive Date: 20190930
  Receipt Date: 20190930
  Transmission Date: 20191005
  Serious: Yes (Hospitalization)
  Sender: FDA-Public Use
  Company Number: US-MYLANLABS-2019M1090334

PATIENT
  Age: 70 Year
  Sex: Male
  Weight: 84 kg

DRUGS (2)
  1. HEPARIN [Suspect]
     Active Substance: HEPARIN SODIUM
     Indication: ANTICOAGULANT THERAPY
     Dosage: 8000 UNITS (95 UNITS/KG)
     Route: 040
  2. HEPARIN [Interacting]
     Active Substance: HEPARIN SODIUM
     Dosage: 6000 UNITS (71 UNITS/KG)
     Route: 040

REACTIONS (4)
  - Drug interaction [Recovering/Resolving]
  - Peripheral artery thrombosis [Recovering/Resolving]
  - Therapy non-responder [Recovering/Resolving]
  - Anticoagulation drug level decreased [Recovering/Resolving]
